FAERS Safety Report 9408191 (Version 1)
Quarter: 2013Q3

REPORT INFORMATION
  Report Type: Spontaneous
  Country: FR (occurrence: FR)
  Receive Date: 20130718
  Receipt Date: 20130718
  Transmission Date: 20140515
  Serious: Yes (Hospitalization)
  Sender: FDA-Public Use
  Company Number: FR-SANOFI-AVENTIS-2013SA069746

PATIENT
  Age: 81 Year
  Sex: Female

DRUGS (8)
  1. LASILIX [Suspect]
     Indication: CARDIAC FAILURE
     Route: 048
     Dates: start: 20130314, end: 20130325
  2. DIAMOX [Suspect]
     Indication: OCULAR HYPERTENSION
     Route: 048
     Dates: start: 20130314, end: 20130326
  3. LISINOPRIL [Suspect]
     Indication: HYPERTENSION
     Route: 048
     Dates: start: 2012, end: 20130326
  4. ESIDREX [Concomitant]
     Indication: HYPERTENSION
     Dosage: STRENGTH: 25MG
     Route: 048
     Dates: start: 2012, end: 20130314
  5. PREVISCAN [Concomitant]
     Indication: THROMBOSIS PROPHYLAXIS
     Dosage: STRENGTH: 20MG?LONG-TERM TREATMENT
     Route: 048
  6. CORDARONE [Concomitant]
     Indication: ATRIAL FIBRILLATION
     Dosage: STRENGTH: 200MG?LONG-TERM TREATMENT
     Route: 048
  7. ACEBUTOLOL [Concomitant]
     Indication: CARDIAC FAILURE
     Dosage: STRENGTH: 200MG?LONG-TERM TREATMENT
     Route: 048
  8. SIMVASTATIN [Concomitant]
     Dosage: STRENGTH: 20MG?LONG-TERM TREATMENT
     Route: 048

REACTIONS (6)
  - Hyperkalaemia [Recovered/Resolved]
  - Renal failure acute [Recovered/Resolved]
  - Blood urea increased [Recovered/Resolved]
  - Blood creatinine increased [Recovered/Resolved]
  - Renal function test abnormal [Recovered/Resolved]
  - Metabolic acidosis [Recovered/Resolved]
